FAERS Safety Report 4375862-7 (Version None)
Quarter: 2004Q2

REPORT INFORMATION
  Report Type: 
  Country: None (occurrence: None)
  Receive Date: 20040607
  Receipt Date: 20040525
  Transmission Date: 20050107
  Serious: Yes (Other)
  Sender: FDA-Public Use
  Company Number: GB-JNJFOC-20040506166

PATIENT
  Age: 14 Year
  Sex: Male

DRUGS (1)
  1. DURAGESIC [Suspect]
     Indication: NEUROBLASTOMA
     Dosage: TRANSDERMAL
     Route: 062

REACTIONS (3)
  - ABNORMAL DREAMS [None]
  - DISSOCIATION [None]
  - HALLUCINATION [None]
